FAERS Safety Report 19446859 (Version 1)
Quarter: 2021Q2

REPORT INFORMATION
  Report Type: Spontaneous
  Country: US (occurrence: US)
  Receive Date: 20210619
  Receipt Date: 20210619
  Transmission Date: 20210717
  Serious: Yes (Hospitalization)
  Sender: FDA-Public Use
  Company Number: None

PATIENT
  Age: 57 Year
  Sex: Male
  Weight: 55 kg

DRUGS (3)
  1. LEUCOVORIN CALCIUM. [Suspect]
     Active Substance: LEUCOVORIN CALCIUM
     Dates: end: 20210601
  2. ELOXATIN [Suspect]
     Active Substance: OXALIPLATIN
     Dates: end: 20210601
  3. 5?FLUOROURACIL (5?FU) [Suspect]
     Active Substance: FLUOROURACIL
     Dates: end: 20210603

REACTIONS (4)
  - Therapy interrupted [None]
  - Fall [None]
  - Hip fracture [None]
  - Device connection issue [None]

NARRATIVE: CASE EVENT DATE: 20210603
